FAERS Safety Report 12660860 (Version 4)
Quarter: 2017Q1

REPORT INFORMATION
  Report Type: Spontaneous
  Country: US (occurrence: US)
  Receive Date: 20160817
  Receipt Date: 20170216
  Transmission Date: 20170428
  Serious: No
  Sender: FDA-Public Use
  Company Number: US-RELYPSA-RLY2016001267

PATIENT
  Sex: Male

DRUGS (15)
  1. VELTASSA [Suspect]
     Active Substance: PATIROMER
     Dosage: 8.4 G, TWICE A WEEK
     Route: 048
     Dates: start: 2016
  2. DIOVAN [Concomitant]
     Active Substance: VALSARTAN
  3. VELTASSA [Suspect]
     Active Substance: PATIROMER
     Indication: HYPERKALAEMIA
     Dosage: 8.4 G, QD
     Route: 048
     Dates: start: 201604, end: 2016
  4. VASOTEC [Concomitant]
     Active Substance: ENALAPRIL MALEATE
  5. STARLIX [Concomitant]
     Active Substance: NATEGLINIDE
  6. TRADJENTA [Concomitant]
     Active Substance: LINAGLIPTIN
  7. NITRO-DUR [Concomitant]
     Active Substance: NITROGLYCERIN
  8. METANX [Concomitant]
     Active Substance: LEVOMEFOLATE CALCIUM\METHYLCOBALAMIN\PYRIDOXAL PHOSPHATE ANHYDROUS
  9. PREDNISONE. [Concomitant]
     Active Substance: PREDNISONE
  10. LIPITOR [Concomitant]
     Active Substance: ATORVASTATIN CALCIUM
  11. IMURAN [Concomitant]
     Active Substance: AZATHIOPRINE
  12. LOVAZA [Concomitant]
     Active Substance: OMEGA-3-ACID ETHYL ESTERS
  13. EPIPEN [Concomitant]
     Active Substance: EPINEPHRINE
  14. MYFORTIC [Concomitant]
     Active Substance: MYCOPHENOLATE SODIUM
  15. ZANTAC [Concomitant]
     Active Substance: RANITIDINE HYDROCHLORIDE

REACTIONS (3)
  - Inappropriate schedule of drug administration [Not Recovered/Not Resolved]
  - Abdominal discomfort [Recovered/Resolved]
  - Diarrhoea [Unknown]

NARRATIVE: CASE EVENT DATE: 2016
